FAERS Safety Report 4642045-2 (Version None)
Quarter: 2005Q2

REPORT INFORMATION
  Report Type: 
  Country: None (occurrence: None)
  Receive Date: 20050420
  Receipt Date: 20050411
  Transmission Date: 20051028
  Serious: No
  Sender: FDA-Public Use
  Company Number: 2005AC00577

PATIENT

DRUGS (1)
  1. FELODIPINE [Suspect]

REACTIONS (4)
  - ASTHENIA [None]
  - DERMATITIS ALLERGIC [None]
  - FATIGUE [None]
  - MYALGIA [None]
